FAERS Safety Report 8423036-2 (Version None)
Quarter: 2012Q2

REPORT INFORMATION
  Report Type: 
  Country: None (occurrence: None)
  Receive Date: 20120608
  Receipt Date: 20120529
  Transmission Date: 20120825
  Serious: Yes (Disabling, Other)
  Sender: FDA-Public Use
  Company Number: US-CELGENEUS-163-21880-12042449

PATIENT
  Sex: Female

DRUGS (15)
  1. HYDROCODONE BITARTRATE + ACETAMINOPHEN [Concomitant]
     Dosage: 5-325 MG (1-2 TABS)
     Route: 048
     Dates: start: 20110805
  2. REVLIMID [Suspect]
     Route: 048
     Dates: start: 20120101
  3. MEVACOR [Concomitant]
     Dosage: 20 MILLIGRAM
     Route: 048
  4. COMPAZINE [Concomitant]
     Dosage: 10 MILLIGRAM
     Route: 048
  5. LASIX [Concomitant]
     Dosage: .5 TABLET
     Route: 048
     Dates: start: 20110708
  6. CIPROFLOXACIN [Concomitant]
     Dosage: 500 MILLIGRAM
     Route: 048
     Dates: start: 20120113
  7. ASPIRIN [Concomitant]
     Dosage: 81 MILLIGRAM
     Route: 048
  8. DOXYCYCLINE HYCLATE [Concomitant]
     Dosage: 200 MILLIGRAM
     Route: 048
     Dates: start: 20110930
  9. ACYCLOVIR [Concomitant]
     Indication: INFECTION PROPHYLAXIS
     Dosage: 400 MILLIGRAM
     Route: 048
  10. MICRO-K [Concomitant]
     Dosage: 10 MILLIEQUIVALENTS
     Route: 048
     Dates: start: 20110617
  11. REVLIMID [Suspect]
     Indication: MULTIPLE MYELOMA
     Dosage: 15 MILLIGRAM
     Route: 048
     Dates: start: 20120316
  12. DEXAMETHASONE [Concomitant]
     Dosage: 10 TABLET
     Route: 048
     Dates: start: 20120507
  13. SCOPOLAMINE BASE [Concomitant]
     Dosage: 1.5 MILLIGRAM
     Route: 062
     Dates: start: 20120413
  14. DEXAMETHASONE [Concomitant]
     Indication: MULTIPLE MYELOMA
     Dosage: 20 MILLIGRAM
     Route: 048
     Dates: start: 20120316
  15. KEFLEX [Concomitant]
     Dosage: 500 MILLIGRAM
     Route: 048
     Dates: start: 20110916

REACTIONS (1)
  - COLON CANCER METASTATIC [None]
